FAERS Safety Report 9336505 (Version 2)
Quarter: 2013Q3

REPORT INFORMATION
  Report Type: Spontaneous
  Country: US (occurrence: US)
  Receive Date: 20130607
  Receipt Date: 20130701
  Transmission Date: 20140515
  Serious: No
  Sender: FDA-Public Use
  Company Number: US-PFIZER INC-2013169008

PATIENT
  Age: 63 Year
  Sex: Male

DRUGS (1)
  1. LATANOPROST [Suspect]
     Indication: GLAUCOMA
     Dosage: 1 GTT, 1X/DAY (1 DROP EVERY EVENING - RIGHT EYE)
     Route: 047

REACTIONS (1)
  - Eye irritation [Recovered/Resolved]
